FAERS Safety Report 13956045 (Version 1)
Quarter: 2017Q3

REPORT INFORMATION
  Report Type: Spontaneous
  Country: US (occurrence: US)
  Receive Date: 20170911
  Receipt Date: 20170911
  Transmission Date: 20171128
  Serious: No
  Sender: FDA-Public Use
  Company Number: US-ASTELLAS-2017US033681

PATIENT
  Age: 37 Year
  Sex: Female

DRUGS (1)
  1. CRESEMBA [Suspect]
     Active Substance: ISAVUCONAZONIUM SULFATE
     Indication: BRONCHOPULMONARY ASPERGILLOSIS
     Route: 048
     Dates: start: 20170425

REACTIONS (4)
  - Pharyngeal oedema [Unknown]
  - Product taste abnormal [Unknown]
  - Product physical issue [Unknown]
  - Poor quality drug administered [Unknown]
